FAERS Safety Report 6372476-4 (Version None)
Quarter: 2009Q3

REPORT INFORMATION
  Report Type: 
  Country: None (occurrence: None)
  Receive Date: 20090924
  Receipt Date: 20080731
  Transmission Date: 20100115
  Serious: No
  Sender: FDA-Public Use
  Company Number: US-ASTRAZENECA-2008UW15762

PATIENT
  Sex: Female
  Weight: 95.3 kg

DRUGS (4)
  1. SEROQUEL [Suspect]
     Indication: BIPOLAR DISORDER
     Route: 048
     Dates: start: 20000101, end: 20000101
  2. WELLBUTRIN [Concomitant]
  3. REMERON [Concomitant]
  4. EFFEXOR [Concomitant]

REACTIONS (2)
  - COORDINATION ABNORMAL [None]
  - FEELING ABNORMAL [None]
